FAERS Safety Report 21416974 (Version 1)
Quarter: 2022Q4

REPORT INFORMATION
  Report Type: Spontaneous
  Country: JP (occurrence: JP)
  Receive Date: 20221006
  Receipt Date: 20221006
  Transmission Date: 20230113
  Serious: Yes (Hospitalization, Other)
  Sender: FDA-Public Use
  Company Number: JP-PFIZER INC-PV202200071621

PATIENT
  Age: 86 Year
  Sex: Female
  Weight: 48.2 kg

DRUGS (28)
  1. TRIAZOLAM [Suspect]
     Active Substance: TRIAZOLAM
     Indication: Insomnia
     Dosage: 1 DF, 1X/DAY, BEFORE SLEEP
     Route: 048
  2. ZOLPIDEM TARTRATE [Suspect]
     Active Substance: ZOLPIDEM TARTRATE
     Dosage: 2 DF, WHEN SLEEPLESSNESS OCCURS
     Route: 048
  3. AMLODIPINE [Suspect]
     Active Substance: AMLODIPINE BESYLATE
     Dosage: 1 DF, 1X/DAY, AFTER BREAKFAST
     Route: 048
  4. PREGABALIN [Suspect]
     Active Substance: PREGABALIN
     Dosage: 2 DF, 2X/DAY, AFTER BREAKFAST/DINNER
     Route: 048
  5. ASCORBIC ACID\CALCIUM PANTOTHENATE [Suspect]
     Active Substance: ASCORBIC ACID\CALCIUM PANTOTHENATE
     Dosage: 2 DF, 1X/DAY, AFTER BREAKFAST
     Route: 048
  6. SUCRALFATE [Suspect]
     Active Substance: SUCRALFATE
     Dosage: 3 G, 3X/DAY, AFTER BREAKFAST/LUNCH/DINNER
     Route: 048
  7. FOLIC ACID [Suspect]
     Active Substance: FOLIC ACID
     Dosage: 3 G, 3X/DAY, AFTER BREAKFAST/LUNCH/DINNER
     Route: 048
  8. ASPIRIN [Suspect]
     Active Substance: ASPIRIN
     Dosage: 1 DF, 1X/DAY, AFTER BREAKFAST
     Route: 048
  9. HERBALS [Suspect]
     Active Substance: HERBALS
     Dosage: 1 DF, 1X/DAY, BEFORE SLEEP
     Route: 048
  10. CYANOCOBALAMIN [Suspect]
     Active Substance: CYANOCOBALAMIN
     Dosage: 3 DF, 3X/DAY, AFTER BREAKFAST/LUNCH/DINNER
     Route: 048
  11. MEXILETINE HYDROCHLORIDE [Suspect]
     Active Substance: MEXILETINE HYDROCHLORIDE
     Dosage: 3 DF, 3X/DAY, AFTER BREAKFAST/LUNCH/DINNER
     Route: 048
  12. ACETAMINOPHEN [Suspect]
     Active Substance: ACETAMINOPHEN
     Dosage: 6 DF, 3X/DAY,AFTER BREAKFAST/LUNCH/DINNER
     Route: 048
  13. LANSOPRAZOLE [Suspect]
     Active Substance: LANSOPRAZOLE
     Dosage: 1 DF, 1X/DAY, AFTER BREAKFAST
     Route: 048
  14. OMEGA-3 FATTY ACIDS [Suspect]
     Active Substance: OMEGA-3 FATTY ACIDS
     Dosage: 1 DF, 1X/DAY, AFTER BREAKFAST
  15. DULOXETINE [Suspect]
     Active Substance: DULOXETINE
     Dosage: 1 DF, 1X/DAY, BEFORE SLEEP
     Route: 048
  16. ELDECALCITOL [Suspect]
     Active Substance: ELDECALCITOL
     Dosage: 1 DF, 1X/DAY, BEFORE SLEEP
     Route: 048
  17. RALOXIFENE HYDROCHLORIDE [Suspect]
     Active Substance: RALOXIFENE HYDROCHLORIDE
     Dosage: 1 DF, 1X/DAY, AFTER BREAKFAST
     Route: 048
  18. EPERISONE HYDROCHLORIDE [Suspect]
     Active Substance: EPERISONE HYDROCHLORIDE
     Dosage: 3 DF, 3X/DAY, AFTER BREAKFAST/LUNCH/DINNER
  19. LIMAPROST [Suspect]
     Active Substance: LIMAPROST
     Dosage: 3 DF, 3X/DAY, AFTER BREAKFAST/LUNCH/DINNER
     Route: 048
  20. ETIZOLAM [Suspect]
     Active Substance: ETIZOLAM
     Indication: Insomnia
     Dosage: 1 DF, 1X/DAY, BEFORE SLEEP
     Route: 048
  21. PILOCARPINE HYDROCHLORIDE [Suspect]
     Active Substance: PILOCARPINE HYDROCHLORIDE
     Dosage: 3 DF, 3X/DAY, AFTER BREAKFAST/LUNCH/DINNER
     Route: 048
  22. ASIAN GINSENG [Suspect]
     Active Substance: ASIAN GINSENG
     Dosage: 3 G, 3X/DAY, AFTER BREAKFAST/LUNCH/DINNER
     Route: 048
  23. TOCOPHEROL [Suspect]
     Active Substance: TOCOPHEROL
     Dosage: 2 DF, 2X/DAY, AFTER LUNCH/DINNER
     Route: 048
  24. SENNOSIDES A AND B [Suspect]
     Active Substance: SENNOSIDES A AND B
     Dosage: 2 DF, 1X/DAY, BEFORE SLEEP
     Route: 048
  25. CELECOXIB [Suspect]
     Active Substance: CELECOXIB
     Dosage: 1 DF, WHEN PAIN OCCURS
     Route: 048
  26. REBAMIPIDE [Suspect]
     Active Substance: REBAMIPIDE
     Dosage: 1 DF, WHEN PAIN OCCURS
     Route: 048
  27. HERBALS [Suspect]
     Active Substance: HERBALS
     Dosage: 1 DF, WHEN INAPPETENCE OCCURS
     Route: 048
  28. DIAZEPAM [Suspect]
     Active Substance: DIAZEPAM
     Dosage: 1 DF, WHEN SLEEPLESSNESS OCCURS
     Route: 048

REACTIONS (2)
  - Fall [Unknown]
  - Femur fracture [Unknown]
